FAERS Safety Report 25216078 (Version 2)
Quarter: 2025Q3

REPORT INFORMATION
  Report Type: Spontaneous
  Country: CN (occurrence: CN)
  Receive Date: 20250418
  Receipt Date: 20250803
  Transmission Date: 20251020
  Serious: Yes (Other)
  Sender: ALEXION PHARMACEUTICALS
  Company Number: CN-ASTRAZENECA-202504CHN014723CN

PATIENT
  Age: 35 Year
  Sex: Female
  Weight: 72.5 kg

DRUGS (2)
  1. XIGDUO XR [Suspect]
     Active Substance: DAPAGLIFLOZIN PROPANEDIOL\METFORMIN HYDROCHLORIDE
     Indication: Diabetes mellitus
     Dosage: 1 DOSAGE FORM, QD
     Dates: start: 20250408, end: 20250412
  2. INSULIN LISPRO [Concomitant]
     Active Substance: INSULIN LISPRO
     Route: 065

REACTIONS (4)
  - Ketoacidosis [Recovering/Resolving]
  - Nausea [Recovering/Resolving]
  - Vomiting [Recovering/Resolving]
  - Abdominal pain [Recovering/Resolving]

NARRATIVE: CASE EVENT DATE: 20250411
